FAERS Safety Report 8974641 (Version 2)
Quarter: 2013Q1

REPORT INFORMATION
  Report Type: Spontaneous
  Country: US (occurrence: US)
  Receive Date: 20121220
  Receipt Date: 20130312
  Transmission Date: 20140127
  Serious: Yes (Other)
  Sender: FDA-Public Use
  Company Number: US-PAR PHARMACEUTICAL, INC-2012SCPR004785

PATIENT
  Sex: 0

DRUGS (3)
  1. BUPROPION HCL XL TABLETS [Suspect]
     Indication: DEPRESSION
     Dosage: 2 TABLETS, A DAY
     Route: 048
     Dates: start: 2009, end: 20121207
  2. BUPROPION [Suspect]
     Indication: DEPRESSION
     Dosage: UNK, UNKNOWN
     Route: 065
  3. AUGMENTINE                         /00756801/ [Concomitant]
     Indication: PRODUCT USED FOR UNKNOWN INDICATION
     Dosage: UNK, UNKNOWN
     Route: 065
     Dates: start: 20121115

REACTIONS (6)
  - Drug dependence [Recovered/Resolved]
  - Alcoholism [Recovered/Resolved]
  - Food craving [Recovered/Resolved]
  - Fatigue [Recovered/Resolved]
  - Drug ineffective [Recovered/Resolved]
  - Product quality issue [Unknown]
